FAERS Safety Report 5344119-X (Version None)
Quarter: 2007Q2

REPORT INFORMATION
  Report Type: 
  Country: None (occurrence: None)
  Receive Date: 20070604
  Receipt Date: 20070524
  Transmission Date: 20071010
  Serious: Yes (Hospitalization)
  Sender: FDA-Public Use
  Company Number: CHWYE720124MAY07

PATIENT
  Age: 41 Year
  Sex: Female

DRUGS (9)
  1. EFFEXOR [Suspect]
     Route: 048
     Dates: start: 20061228, end: 20070104
  2. EFFEXOR [Suspect]
     Route: 048
     Dates: start: 20070105, end: 20070114
  3. EFFEXOR [Suspect]
     Route: 048
     Dates: start: 20070115, end: 20070314
  4. EFFEXOR [Suspect]
     Route: 048
     Dates: start: 20070315, end: 20070321
  5. EFFEXOR [Suspect]
     Dosage: REDUCTION FROM 150 MG
     Route: 048
     Dates: start: 20070322, end: 20070411
  6. SEROQUEL [Suspect]
     Route: 048
     Dates: start: 20040701, end: 20070401
  7. SEROQUEL [Suspect]
     Route: 048
     Dates: start: 20070401
  8. PANTOPRAZOLE SODIUM [Concomitant]
     Route: 048
     Dates: start: 20061128
  9. FERRUM HAUSMANN [Suspect]
     Route: 048
     Dates: start: 20070126, end: 20070319

REACTIONS (4)
  - ABDOMINAL PAIN UPPER [None]
  - CONSTIPATION [None]
  - GASTROINTESTINAL MOTILITY DISORDER [None]
  - NAUSEA [None]
